FAERS Safety Report 8122060-7 (Version None)
Quarter: 2012Q1

REPORT INFORMATION
  Report Type: 
  Country: None (occurrence: None)
  Receive Date: 20120208
  Receipt Date: 20120206
  Transmission Date: 20120608
  Serious: Yes (Hospitalization)
  Sender: FDA-Public Use
  Company Number: AU-ROCHE-1037334

PATIENT
  Sex: Male
  Weight: 80 kg

DRUGS (4)
  1. XELODA [Suspect]
     Indication: METASTATIC GASTRIC CANCER
     Route: 048
     Dates: start: 20120116, end: 20120119
  2. NEXIUM [Concomitant]
     Indication: GASTROOESOPHAGEAL REFLUX DISEASE
     Route: 048
  3. CANDESARTAN CILEXETIL [Concomitant]
     Indication: CARDIAC FAILURE
     Route: 048
  4. ATENOLOL [Concomitant]
     Indication: HYPERTENSION
     Route: 048

REACTIONS (4)
  - PULMONARY EMBOLISM [None]
  - ASPIRATION [None]
  - ATRIAL FIBRILLATION [None]
  - INTESTINAL OBSTRUCTION [None]
